FAERS Safety Report 9452707 (Version 5)
Quarter: 2015Q4

REPORT INFORMATION
  Report Type: Report from Study
  Country: CA (occurrence: CA)
  Receive Date: 20130812
  Receipt Date: 20151115
  Transmission Date: 20160305
  Serious: Yes (Life-Threatening, Other)
  Sender: FDA-Public Use
  Company Number: CA-ROCHE-1259617

PATIENT
  Age: 69 Year
  Sex: Male
  Weight: 105 kg

DRUGS (22)
  1. GLICLAZIDE [Concomitant]
     Active Substance: GLICLAZIDE
  2. DOMPERIDONE [Concomitant]
     Active Substance: DOMPERIDONE
  3. METHOTREXATE [Concomitant]
     Active Substance: METHOTREXATE
     Route: 058
  4. RITUXAN [Suspect]
     Active Substance: RITUXIMAB
     Route: 048
     Dates: start: 20130806
  5. ACETAMINOPHEN. [Concomitant]
     Active Substance: ACETAMINOPHEN
     Indication: PREMEDICATION
     Route: 048
     Dates: start: 20130725
  6. PREDNISONE. [Concomitant]
     Active Substance: PREDNISONE
  7. METFORMIN [Concomitant]
     Active Substance: METFORMIN HYDROCHLORIDE
  8. RAMIPRIL. [Concomitant]
     Active Substance: RAMIPRIL
  9. NITRO PATCH [Concomitant]
     Active Substance: NITROGLYCERIN
  10. FERROUS GLUCONATE [Concomitant]
     Active Substance: FERROUS GLUCONATE
  11. CLONAZEPAM. [Concomitant]
     Active Substance: CLONAZEPAM
  12. FOLIC ACID. [Concomitant]
     Active Substance: FOLIC ACID
  13. ROSUVASTATIN [Concomitant]
     Active Substance: ROSUVASTATIN
  14. METHYLPREDNISOLONE. [Suspect]
     Active Substance: METHYLPREDNISOLONE
     Indication: PREMEDICATION
     Route: 042
     Dates: start: 20130725
  15. ACETAMINOPHEN. [Concomitant]
     Active Substance: ACETAMINOPHEN
     Route: 048
     Dates: start: 20130806
  16. CIPRALEX [Concomitant]
     Active Substance: ESCITALOPRAM OXALATE
  17. DIPHENHYDRAMINE HCL [Concomitant]
     Active Substance: DIPHENHYDRAMINE HYDROCHLORIDE
     Indication: PREMEDICATION
     Route: 048
     Dates: start: 20130725
  18. RITUXAN [Suspect]
     Active Substance: RITUXIMAB
     Indication: RHEUMATOID ARTHRITIS
     Route: 042
     Dates: start: 20130725
  19. SENOKOT [Concomitant]
     Active Substance: SENNOSIDES
  20. FUROSEMIDE. [Concomitant]
     Active Substance: FUROSEMIDE
  21. JANUVIA [Concomitant]
     Active Substance: SITAGLIPTIN PHOSPHATE
  22. GABAPENTIN. [Concomitant]
     Active Substance: GABAPENTIN

REACTIONS (5)
  - Headache [Recovered/Resolved]
  - Blood glucose increased [Recovered/Resolved]
  - Angina pectoris [Unknown]
  - Blood pressure diastolic decreased [Unknown]
  - Cellulitis [Not Recovered/Not Resolved]

NARRATIVE: CASE EVENT DATE: 20130725
